FAERS Safety Report 8134203-X (Version None)
Quarter: 2012Q1

REPORT INFORMATION
  Report Type: 
  Country: None (occurrence: None)
  Receive Date: 20120214
  Receipt Date: 20120206
  Transmission Date: 20120608
  Serious: Yes (Hospitalization, Other)
  Sender: FDA-Public Use
  Company Number: US-BAYER-2011-039165

PATIENT
  Age: 30 Year
  Sex: Female
  Weight: 57.596 kg

DRUGS (6)
  1. YAZ [Suspect]
     Indication: ORAL CONTRACEPTION
     Dosage: UNK
     Dates: start: 20030101, end: 20100101
  2. YASMIN [Suspect]
     Indication: ORAL CONTRACEPTION
     Dosage: UNK UNK, QD
     Route: 048
     Dates: start: 20030101, end: 20100101
  3. DROSPIRENONE AND ETHINYL ESTRADIOL [Suspect]
     Indication: ORAL CONTRACEPTION
     Dosage: UNK
     Dates: start: 20030101, end: 20100101
  4. YAZ [Suspect]
     Indication: ACNE
  5. YASMIN [Suspect]
     Indication: ACNE
  6. DROSPIRENONE AND ETHINYL ESTRADIOL [Suspect]
     Indication: ACNE

REACTIONS (6)
  - CHOLECYSTITIS CHRONIC [None]
  - GALLBLADDER DISORDER [None]
  - INJURY [None]
  - PAIN [None]
  - CHOLELITHIASIS [None]
  - CHOLECYSTITIS [None]
